FAERS Safety Report 7799334-2 (Version None)
Quarter: 2011Q4

REPORT INFORMATION
  Report Type: 
  Country: None (occurrence: None)
  Receive Date: 20111006
  Receipt Date: 20110923
  Transmission Date: 20120403
  Serious: Yes (Hospitalization)
  Sender: FDA-Public Use
  Company Number: ES-SANOFI-AVENTIS-2011SA062920

PATIENT
  Age: 50 Year
  Sex: Female

DRUGS (7)
  1. PANTOPRAZOLE [Concomitant]
     Dates: start: 20110626
  2. OXALIPLATIN [Suspect]
     Route: 042
     Dates: start: 20110221
  3. LEUCOVORIN CALCIUM [Suspect]
     Route: 042
     Dates: start: 20110221
  4. FLUOROURACIL [Suspect]
     Route: 042
     Dates: start: 20110221
  5. BEVACIZUMAB [Suspect]
     Route: 042
     Dates: start: 20110221
  6. FUROSEMIDE [Concomitant]
     Dates: start: 20110626, end: 20110805
  7. ENOXAPARIN SODIUM [Concomitant]
     Dates: start: 20110626

REACTIONS (2)
  - PLEURAL EFFUSION [None]
  - HAEMATOMA [None]
